FAERS Safety Report 13857774 (Version 1)
Quarter: 2017Q3

REPORT INFORMATION
  Report Type: Spontaneous
  Country: DE (occurrence: DE)
  Receive Date: 20170811
  Receipt Date: 20170811
  Transmission Date: 20171127
  Serious: Yes (Other)
  Sender: FDA-Public Use
  Company Number: DE-TORRENT-00006816

PATIENT
  Age: 83 Year
  Sex: Female

DRUGS (3)
  1. MOXIFLOXACIN HEUMANN 400MG [Suspect]
     Active Substance: MOXIFLOXACIN HYDROCHLORIDE
  2. VENLAFAXINE HYDROCHLORIDE. [Concomitant]
     Active Substance: VENLAFAXINE HYDROCHLORIDE
  3. L DOPA [Concomitant]
     Active Substance: LEVODOPA

REACTIONS (2)
  - Depression [Not Recovered/Not Resolved]
  - Eye movement disorder [Not Recovered/Not Resolved]
